FAERS Safety Report 6921907-7 (Version None)
Quarter: 2010Q3

REPORT INFORMATION
  Report Type: 
  Country: None (occurrence: None)
  Receive Date: 20100806
  Receipt Date: 20100622
  Transmission Date: 20110219
  Serious: No
  Sender: FDA-Public Use
  Company Number: 2010-08448

PATIENT
  Age: 65 Year
  Sex: Male

DRUGS (1)
  1. RAPAFLO [Suspect]
     Indication: BENIGN PROSTATIC HYPERPLASIA
     Dosage: 1 CAPSULE, SINGLE USE ONLY, ORAL
     Route: 048
     Dates: start: 20100621, end: 20100621

REACTIONS (2)
  - EJACULATION FAILURE [None]
  - HEADACHE [None]
